FAERS Safety Report 6253381-0 (Version None)
Quarter: 2009Q3

REPORT INFORMATION
  Report Type: 
  Country: None (occurrence: None)
  Receive Date: 20090701
  Receipt Date: 20090629
  Transmission Date: 20100115
  Serious: Yes (Death, Hospitalization)
  Sender: FDA-Public Use
  Company Number: PHHY2009BR26300

PATIENT
  Sex: Male

DRUGS (1)
  1. DIOVAN [Suspect]

REACTIONS (4)
  - CARDIAC ARREST [None]
  - DIABETES MELLITUS [None]
  - EMPHYSEMA [None]
  - HYPERTENSION [None]
